FAERS Safety Report 6402650-X (Version None)
Quarter: 2009Q4

REPORT INFORMATION
  Report Type: 
  Country: None (occurrence: None)
  Receive Date: 20091009
  Receipt Date: 20090930
  Transmission Date: 20100525
  Serious: Yes (Life-Threatening)
  Sender: FDA-Public Use
  Company Number: ADR34322009

PATIENT
  Age: 72 Year
  Sex: Female

DRUGS (12)
  1. CIPROFLOXACIN HYDROCHLORIDE [Suspect]
  2. TAZOCIN (PIPERACILLIN, TZOBACTAM [Concomitant]
  3. ENOXAPARIN SODIUM [Concomitant]
  4. FUROSEMIDE [Concomitant]
  5. MEROPENEM [Concomitant]
  6. MORPHINE [Concomitant]
  7. PARACETAMOL [Concomitant]
  8. ALBUTEROL [Concomitant]
  9. TEICOPLANIN [Concomitant]
  10. TRAMADOL HCL [Concomitant]
  11. VANCOMYCIN [Concomitant]
  12. ACYCLOVIR [Concomitant]

REACTIONS (4)
  - BRONCHOSPASM [None]
  - DRUG HYPERSENSITIVITY [None]
  - HYPOTENSION [None]
  - RASH [None]
